FAERS Safety Report 7825443-5 (Version None)
Quarter: 2011Q4

REPORT INFORMATION
  Report Type: 
  Country: None (occurrence: None)
  Receive Date: 20111019
  Receipt Date: 20111005
  Transmission Date: 20120403
  Serious: Yes (Other)
  Sender: FDA-Public Use
  Company Number: GB-ARROW GEN-2011-13227

PATIENT
  Sex: Female
  Weight: 60 kg

DRUGS (1)
  1. MIRTAZAPINE [Suspect]
     Indication: DEPRESSION
     Dosage: 15 MG, UNKNOWN
     Route: 065
     Dates: start: 20110502, end: 20110617

REACTIONS (2)
  - MYALGIA [None]
  - HYPERSENSITIVITY [None]
